FAERS Safety Report 23604278 (Version 2)
Quarter: 2024Q3

REPORT INFORMATION
  Report Type: Report from Study
  Country: US (occurrence: US)
  Receive Date: 20240307
  Receipt Date: 20240827
  Transmission Date: 20241017
  Serious: Yes (Hospitalization)
  Sender: ROCHE
  Company Number: US-ROCHE-3002866

PATIENT
  Age: 24 Year
  Sex: Female

DRUGS (6)
  1. ERIVEDGE [Suspect]
     Active Substance: VISMODEGIB
     Indication: Osteopetrosis
     Dosage: TAKE 1 CAPSULE BY MOUTH EVERY DAY
     Route: 048
     Dates: start: 20210315
  2. ERIVEDGE [Suspect]
     Active Substance: VISMODEGIB
     Indication: Cerebrospinal fluid drainage
  3. ERIVEDGE [Suspect]
     Active Substance: VISMODEGIB
     Indication: Arnold-Chiari malformation
  4. ERIVEDGE [Suspect]
     Active Substance: VISMODEGIB
     Indication: Hypothalamo-pituitary disorder
  5. ERIVEDGE [Suspect]
     Active Substance: VISMODEGIB
     Indication: Congenital anomaly
  6. AMITRIPTYLINE [Concomitant]
     Active Substance: AMITRIPTYLINE

REACTIONS (3)
  - Off label use [Unknown]
  - Sepsis [Unknown]
  - Memory impairment [Unknown]

NARRATIVE: CASE EVENT DATE: 20210315
